FAERS Safety Report 6446350-9 (Version None)
Quarter: 2009Q4

REPORT INFORMATION
  Report Type: 
  Country: None (occurrence: None)
  Receive Date: 20091119
  Receipt Date: 20091111
  Transmission Date: 20100525
  Serious: Yes (Hospitalization, Other)
  Sender: FDA-Public Use
  Company Number: US-BAXTER-2009BH017369

PATIENT
  Age: 45 Year
  Sex: Female
  Weight: 81 kg

DRUGS (11)
  1. FENTANYL CITRATE [Suspect]
     Indication: PAIN
     Route: 065
     Dates: start: 20090808
  2. HYDROMORPHONE HCL [Suspect]
     Indication: PAIN
     Route: 042
     Dates: start: 20090808
  3. DILAUDID [Suspect]
     Indication: PAIN
     Route: 065
     Dates: start: 20090808
  4. HEPARIN SODIUM INJECTION [Suspect]
     Indication: THROMBOSIS PROPHYLAXIS
     Route: 010
     Dates: start: 20090707, end: 20090820
  5. ARGATROBAN [Suspect]
     Indication: THROMBOSIS PROPHYLAXIS
     Route: 010
     Dates: start: 20090801
  6. BENICAR [Concomitant]
     Indication: DRUG USE FOR UNKNOWN INDICATION
     Route: 065
  7. TIAZAC [Concomitant]
     Indication: DRUG USE FOR UNKNOWN INDICATION
     Route: 065
  8. TUMS [Concomitant]
     Indication: DRUG USE FOR UNKNOWN INDICATION
     Route: 048
  9. METHYLPREDNISOLONE 4MG TAB [Concomitant]
     Indication: MUSCLE STRAIN
     Route: 065
     Dates: start: 19991001
  10. DEPO-MEDROL [Concomitant]
     Indication: MUSCLE STRAIN
     Route: 065
     Dates: start: 19991001
  11. TRIAL METHASONE [Concomitant]
     Indication: MUSCLE STRAIN
     Route: 065
     Dates: start: 19991001

REACTIONS (9)
  - HEPARIN-INDUCED THROMBOCYTOPENIA [None]
  - HYPERHIDROSIS [None]
  - HYPOTHALAMO-PITUITARY DISORDER [None]
  - MUSCLE SPASMS [None]
  - OVERDOSE [None]
  - PALPITATIONS [None]
  - PSYCHOTIC DISORDER [None]
  - SEPSIS [None]
  - SPEECH DISORDER [None]
